FAERS Safety Report 7889565-5 (Version None)
Quarter: 2011Q4

REPORT INFORMATION
  Report Type: 
  Country: None (occurrence: None)
  Receive Date: 20111103
  Receipt Date: 20110324
  Transmission Date: 20120403
  Serious: No
  Sender: FDA-Public Use
  Company Number: US-BRISTOL-MYERS SQUIBB COMPANY-15612682

PATIENT
  Age: 50 Year
  Sex: Female

DRUGS (2)
  1. MARCAINE [Concomitant]
     Indication: INJECTION
     Dosage: LAST INJECTION 3 MONTHS AGO,PLACE OF INJECTION: ILIAC SPINE.
  2. KENALOG-40 [Suspect]
     Indication: INJECTION
     Dosage: 1DF= 1CC,LAST INJECTION 3 MONTHS AGO,PLACE OF INJECTION: ILIAC SPINE.

REACTIONS (2)
  - INJECTION SITE ATROPHY [None]
  - SKIN HYPOPIGMENTATION [None]
